FAERS Safety Report 18781363 (Version 1)
Quarter: 2021Q1

REPORT INFORMATION
  Report Type: Report from Study
  Country: CA (occurrence: CA)
  Receive Date: 20210125
  Receipt Date: 20210125
  Transmission Date: 20210419
  Serious: Yes (Other)
  Sender: FDA-Public Use
  Company Number: CA-BAUSCH-BL-2021-001306

PATIENT
  Age: 45 Year
  Sex: Female

DRUGS (4)
  1. ATROVENT [Suspect]
     Active Substance: IPRATROPIUM BROMIDE
     Indication: ASTHMA
     Route: 065
  2. GLYCOPYRRONIUM BROMIDE [Suspect]
     Active Substance: GLYCOPYRRONIUM
     Indication: ASTHMA
     Route: 065
  3. PULMICORT TURBUHALER [Suspect]
     Active Substance: BUDESONIDE
     Indication: ASTHMA
     Route: 065
  4. SALBUTAMOL SULFATE [Suspect]
     Active Substance: ALBUTEROL SULFATE
     Indication: ASTHMA
     Route: 065

REACTIONS (10)
  - Asthma [Unknown]
  - Sleep disorder due to a general medical condition [Unknown]
  - Dizziness [Unknown]
  - Loss of personal independence in daily activities [Unknown]
  - Dyspnoea [Unknown]
  - Obstructive airways disorder [Unknown]
  - Vital capacity decreased [Unknown]
  - Wheezing [Unknown]
  - Chest discomfort [Unknown]
  - Therapeutic product effect incomplete [Unknown]
